FAERS Safety Report 7800281-8 (Version None)
Quarter: 2011Q4

REPORT INFORMATION
  Report Type: 
  Country: None (occurrence: None)
  Receive Date: 20111006
  Receipt Date: 20110927
  Transmission Date: 20120403
  Serious: Yes (Hospitalization, Other)
  Sender: FDA-Public Use
  Company Number: JP-GLAXOSMITHKLINE-B0744050A

PATIENT
  Age: 87 Year
  Sex: Female

DRUGS (4)
  1. VALTREX [Suspect]
     Indication: HERPES ZOSTER
     Dosage: 3000MG PER DAY
     Route: 048
     Dates: start: 20100825, end: 20100831
  2. GRAMALIL [Concomitant]
     Dosage: 25MG PER DAY
     Route: 048
     Dates: end: 20100829
  3. ABILIFY [Concomitant]
     Dosage: 6MG PER DAY
     Route: 048
     Dates: start: 20100829
  4. LENDORMIN [Concomitant]
     Dosage: .25MG PER DAY
     Route: 048
     Dates: end: 20110829

REACTIONS (7)
  - ALTERED STATE OF CONSCIOUSNESS [None]
  - SOMNOLENCE [None]
  - ELECTROLYTE IMBALANCE [None]
  - ENCEPHALOPATHY [None]
  - SKIN EROSION [None]
  - SCAB [None]
  - HYPONATRAEMIA [None]
